FAERS Safety Report 6827367-9 (Version None)
Quarter: 2010Q3

REPORT INFORMATION
  Report Type: 
  Country: None (occurrence: None)
  Receive Date: 20100709
  Receipt Date: 20070110
  Transmission Date: 20110219
  Serious: No
  Sender: FDA-Public Use
  Company Number: US-PFIZER INC-2007003972

PATIENT
  Sex: Female
  Weight: 102.51 kg

DRUGS (11)
  1. CHANTIX [Suspect]
     Indication: SMOKING CESSATION THERAPY
     Dates: start: 20070106
  2. MACROGOL [Concomitant]
     Indication: CONSTIPATION
  3. ACTOS [Concomitant]
  4. GLUCOPHAGE [Concomitant]
  5. ACETYLSALICYLIC ACID [Concomitant]
  6. BENICAR [Concomitant]
  7. LOZOL [Concomitant]
  8. XANAX [Concomitant]
  9. REGLAN [Concomitant]
  10. PROZAC [Concomitant]
  11. GAS-X [Concomitant]
     Indication: FLATULENCE

REACTIONS (1)
  - ABDOMINAL DISCOMFORT [None]
